FAERS Safety Report 26188605 (Version 2)
Quarter: 2025Q4

REPORT INFORMATION
  Report Type: Spontaneous
  Country: US (occurrence: US)
  Receive Date: 20251222
  Receipt Date: 20251224
  Transmission Date: 20260117
  Serious: Yes (Other)
  Sender: APELLIS PHARMACEUTICALS
  Company Number: US-APELLIS-2025-APL-0002422

PATIENT

DRUGS (12)
  1. SYFOVRE [Suspect]
     Active Substance: PEGCETACOPLAN
     Indication: Dry age-related macular degeneration
     Dosage: OS, EVERY 8 WEEKS
     Route: 031
  2. CLONIDINE HYDROCHLORIDE [Concomitant]
     Active Substance: CLONIDINE HYDROCHLORIDE
     Indication: Product used for unknown indication
     Dosage: 0.3 MG/DAY WEEKLY
     Route: 062
  3. CYCLOBENZAPRINE HYDROCHLORIDE [Concomitant]
     Active Substance: CYCLOBENZAPRINE HYDROCHLORIDE
     Indication: Product used for unknown indication
     Dosage: 10.000MG
     Route: 048
  4. TRIAMCINOLONE ACETONIDE [Concomitant]
     Active Substance: TRIAMCINOLONE ACETONIDE
     Indication: Product used for unknown indication
     Dosage: 0.1 % CREAM
     Route: 061
  5. ALPRAZOLAM [Concomitant]
     Active Substance: ALPRAZOLAM
     Indication: Product used for unknown indication
     Dosage: 1.000MG
     Route: 048
  6. AZITHROMYCIN [Concomitant]
     Active Substance: AZITHROMYCIN
     Indication: Product used for unknown indication
     Dosage: 250.000MG
     Route: 048
  7. ELIQUIS [Concomitant]
     Active Substance: APIXABAN
     Indication: Product used for unknown indication
     Dosage: 5.000MG
     Route: 048
  8. LOSARTAN [Concomitant]
     Active Substance: LOSARTAN
     Indication: Product used for unknown indication
     Dosage: 50.000MG
     Route: 048
  9. VENLAFAXINE [Concomitant]
     Active Substance: VENLAFAXINE HYDROCHLORIDE
     Dosage: 37.5 MG 24 HR EXTENDED RELEASE CAPSULE
  10. VENLAFAXINE [Concomitant]
     Active Substance: VENLAFAXINE HYDROCHLORIDE
     Dosage: 75 MG 24 HR EXTENDED RELEASE
  11. MINERALS\VITAMINS [Concomitant]
     Active Substance: MINERALS\VITAMINS
     Indication: Product used for unknown indication
     Dosage: 1 TABLET TWICE A DAY
  12. Artificial tears [Concomitant]
     Indication: Product used for unknown indication

REACTIONS (13)
  - Uveitis [Unknown]
  - Neovascular age-related macular degeneration [Unknown]
  - Choroidal neovascularisation [Unknown]
  - Dry age-related macular degeneration [Unknown]
  - Vitreous detachment [Unknown]
  - Macular oedema [Unknown]
  - Deafness [Unknown]
  - Corneal abrasion [Unknown]
  - Peripheral swelling [Unknown]
  - Depression [Unknown]
  - Anxiety [Unknown]
  - Epiretinal membrane [Unknown]
  - Disease progression [Unknown]
